FAERS Safety Report 9091069 (Version 2)
Quarter: 2014Q2

REPORT INFORMATION
  Report Type: Spontaneous
  Country: US (occurrence: US)
  Receive Date: 20130131
  Receipt Date: 20140502
  Transmission Date: 20141212
  Serious: Yes (Hospitalization)
  Sender: FDA-Public Use
  Company Number: US-009507513-1301USA013896

PATIENT
  Sex: Male

DRUGS (2)
  1. PROPECIA [Suspect]
     Indication: ALOPECIA
     Dosage: 1 MG, QD
     Route: 048
     Dates: start: 20040312, end: 2010
  2. DIVALPROEX SODIUM [Concomitant]
     Indication: HEAD INJURY
     Dosage: UNK
     Dates: start: 1999, end: 2013

REACTIONS (6)
  - Pneumonia [Unknown]
  - Sexual dysfunction [Not Recovered/Not Resolved]
  - Cognitive disorder [Not Recovered/Not Resolved]
  - Semen volume decreased [Unknown]
  - Erectile dysfunction [Unknown]
  - Loss of libido [Unknown]
